FAERS Safety Report 7599346-8 (Version None)
Quarter: 2011Q3

REPORT INFORMATION
  Report Type: 
  Country: None (occurrence: None)
  Receive Date: 20110711
  Receipt Date: 20081201
  Transmission Date: 20111222
  Serious: Yes (Death, Hospitalization, Other)
  Sender: FDA-Public Use
  Company Number: US-BAYER-200937737NA

PATIENT
  Age: 67 Year
  Sex: Male

DRUGS (12)
  1. THROMBIN LOCAL SOLUTION [Concomitant]
     Dosage: 10000 U, UNK
     Dates: start: 20000615, end: 20000615
  2. MILRINONE [Concomitant]
     Dosage: UNK
     Route: 042
     Dates: start: 20000615, end: 20000615
  3. VERSED [Concomitant]
     Dosage: UNK
     Route: 042
     Dates: start: 20000615, end: 20000615
  4. PROTAMINE SULFATE [Concomitant]
     Dosage: UNK
     Dates: start: 20000615, end: 20000615
  5. RETAVASE [Concomitant]
     Dosage: UNK
     Dates: start: 20000614
  6. FENTANYL [Concomitant]
     Dosage: UNK
     Route: 042
     Dates: start: 20000615, end: 20000615
  7. CONTRAST MEDIA [Concomitant]
     Indication: CATHETERISATION CARDIAC
     Dosage: UNK
     Dates: start: 20000614
  8. ANCEF [Concomitant]
     Dosage: 1 G, UNK
     Route: 042
     Dates: start: 20000615, end: 20000615
  9. VANCOMYCIN [Concomitant]
     Dosage: 500 MG, UNK
     Route: 042
     Dates: start: 20000615, end: 20000615
  10. HEPARIN [Concomitant]
     Dosage: UNK
     Route: 042
     Dates: start: 20000615, end: 20000615
  11. SOLU-MEDROL [Concomitant]
     Dosage: UNK
     Route: 042
     Dates: start: 20000615, end: 20000615
  12. TRASYLOL [Suspect]
     Indication: CORONARY ARTERY BYPASS
     Dosage: 1 ML
     Route: 042
     Dates: start: 20000615, end: 20000615

REACTIONS (7)
  - RENAL FAILURE ACUTE [None]
  - INJURY [None]
  - UNEVALUABLE EVENT [None]
  - PAIN [None]
  - DEATH [None]
  - RENAL FAILURE [None]
  - RENAL INJURY [None]
